FAERS Safety Report 8436076-4 (Version None)
Quarter: 2012Q2

REPORT INFORMATION
  Report Type: 
  Country: None (occurrence: None)
  Receive Date: 20120614
  Receipt Date: 20120607
  Transmission Date: 20120825
  Serious: Yes (Life-Threatening, Hospitalization, Disabling)
  Sender: FDA-Public Use
  Company Number: DE-ROCHE-1076926

PATIENT
  Sex: Male
  Weight: 82 kg

DRUGS (6)
  1. AVASTIN [Suspect]
     Route: 042
     Dates: start: 20101011
  2. ROFERON-A [Suspect]
     Route: 058
     Dates: start: 20100927
  3. AVASTIN [Suspect]
     Route: 042
     Dates: start: 20110130
  4. ROFERON-A [Suspect]
     Route: 058
     Dates: start: 20101011
  5. AVASTIN [Suspect]
     Indication: METASTATIC RENAL CELL CARCINOMA
     Route: 042
     Dates: start: 20100802, end: 20100927
  6. ROFERON-A [Suspect]
     Indication: METASTATIC RENAL CELL CARCINOMA
     Route: 058
     Dates: start: 20100802, end: 20100927

REACTIONS (7)
  - ANAEMIA OF MALIGNANT DISEASE [None]
  - ANAEMIA [None]
  - GENERAL PHYSICAL HEALTH DETERIORATION [None]
  - WEIGHT DECREASED [None]
  - DRUG INEFFECTIVE [None]
  - NEOPLASM MALIGNANT [None]
  - DECREASED APPETITE [None]
